FAERS Safety Report 25941544 (Version 1)
Quarter: 2025Q4

REPORT INFORMATION
  Report Type: Spontaneous
  Country: CH (occurrence: CH)
  Receive Date: 20251020
  Receipt Date: 20251020
  Transmission Date: 20260117
  Serious: Yes (Other)
  Sender: BAUSCH AND LOMB
  Company Number: CH-BAUSCH-BH-2025-018046

PATIENT
  Age: 84 Year
  Sex: Female

DRUGS (3)
  1. ACYCLOVIR [Suspect]
     Active Substance: ACYCLOVIR
     Indication: Herpes simplex
     Route: 042
  2. VALACYCLOVIR HYDROCHLORIDE [Concomitant]
     Active Substance: VALACYCLOVIR HYDROCHLORIDE
     Indication: Herpes simplex
  3. RUXOLITINIB [Concomitant]
     Active Substance: RUXOLITINIB
     Indication: Essential thrombocythaemia
     Dosage: DOSE REDUCED

REACTIONS (2)
  - Acute kidney injury [Unknown]
  - Drug resistance [Unknown]
